FAERS Safety Report 8218794-6 (Version None)
Quarter: 2012Q1

REPORT INFORMATION
  Report Type: 
  Country: None (occurrence: None)
  Receive Date: 20120306
  Receipt Date: 20111215
  Transmission Date: 20120608
  Serious: Yes (Life-Threatening, Hospitalization)
  Sender: FDA-Public Use
  Company Number: US-007247

PATIENT
  Age: 65 Year
  Sex: Male

DRUGS (1)
  1. ISOVUE-300 [Suspect]
     Indication: FISTULOGRAM
     Dosage: 100ML ONCE INTRAVENOUS (NOT OTHERWISE SPECIFIED)
     Route: 042
     Dates: start: 20111207, end: 20111207

REACTIONS (1)
  - HYPERSENSITIVITY [None]
